FAERS Safety Report 7894220-1 (Version None)
Quarter: 2011Q4

REPORT INFORMATION
  Report Type: 
  Country: None (occurrence: None)
  Receive Date: 20111104
  Receipt Date: 20111021
  Transmission Date: 20120403
  Serious: Yes (Hospitalization, Disabling, Other)
  Sender: FDA-Public Use
  Company Number: PHHY2011CO93772

PATIENT
  Sex: Male

DRUGS (8)
  1. LOVASTATIN [Concomitant]
  2. LYRICA [Concomitant]
  3. FLUOXETINE HCL [Concomitant]
  4. INSULIN [Concomitant]
  5. OMEPRAZOLE [Concomitant]
  6. CERTICAN [Suspect]
     Indication: RENAL TRANSPLANT
     Dosage: 2 TABLETS, DAILY
     Route: 048
  7. CLOZAPINE [Concomitant]
  8. FUROSEMIDE [Concomitant]

REACTIONS (2)
  - COMPLICATIONS OF TRANSPLANTED KIDNEY [None]
  - DIABETIC NEUROPATHY [None]
